FAERS Safety Report 5749891-2 (Version None)
Quarter: 2008Q2

REPORT INFORMATION
  Report Type: 
  Country: None (occurrence: None)
  Receive Date: 20080527
  Receipt Date: 20080516
  Transmission Date: 20081010
  Serious: Yes (Death)
  Sender: FDA-Public Use
  Company Number: US-BAXTER-2008BH005089

PATIENT
  Age: 65 Year
  Sex: Male

DRUGS (3)
  1. GAMMAGARD [Suspect]
     Indication: MULTIFOCAL MOTOR NEUROPATHY
     Dosage: DOSE UNIT:UNKNOWN
     Route: 041
     Dates: start: 20071201, end: 20080101
  2. LISINOPRIL [Concomitant]
     Indication: HYPERTENSION
     Dosage: DOSE UNIT:UNKNOWN
     Route: 048
  3. CHOLESTEROL LOWERING DRUG [Concomitant]
     Indication: BLOOD CHOLESTEROL INCREASED
     Dosage: DOSE UNIT:UNKNOWN
     Route: 048

REACTIONS (1)
  - DEATH [None]
